FAERS Safety Report 6824617-X (Version None)
Quarter: 2010Q3

REPORT INFORMATION
  Report Type: 
  Country: None (occurrence: None)
  Receive Date: 20100708
  Receipt Date: 20061108
  Transmission Date: 20110219
  Serious: No
  Sender: FDA-Public Use
  Company Number: US-PFIZER INC-2006138944

PATIENT
  Sex: Female
  Weight: 67.13 kg

DRUGS (5)
  1. CHANTIX [Suspect]
     Dates: start: 20061101
  2. ESTROGENS [Concomitant]
  3. PROGESTERONE [Concomitant]
  4. LEVAQUIN [Concomitant]
     Dates: start: 20061101, end: 20061106
  5. VITAMINS [Concomitant]

REACTIONS (3)
  - ABNORMAL DREAMS [None]
  - DISTURBANCE IN ATTENTION [None]
  - DRUG WITHDRAWAL SYNDROME [None]
